FAERS Safety Report 9495288 (Version 1)
Quarter: 2013Q3

REPORT INFORMATION
  Report Type: Spontaneous
  Country: CA (occurrence: None)
  Receive Date: 20130828
  Receipt Date: 20130828
  Transmission Date: 20140515
  Serious: Yes (Hospitalization)
  Sender: FDA-Public Use
  Company Number: NPIL/SEV/H/2013/70

PATIENT
  Age: 54 Year
  Sex: 0
  Weight: 112 kg

DRUGS (7)
  1. SEVOFLURANE [Suspect]
     Indication: GENERAL ANAESTHESIA
     Route: 055
  2. REMIFENTANIL [Concomitant]
  3. PROPOFOL [Concomitant]
  4. ROCURONIUM [Concomitant]
  5. DEXAMETHASONE [Concomitant]
  6. MANNITOL [Concomitant]
  7. LASIX [Concomitant]

REACTIONS (2)
  - Haemorrhage [None]
  - Rhabdomyolysis [None]
